FAERS Safety Report 10521862 (Version 1)
Quarter: 2014Q4

REPORT INFORMATION
  Report Type: Spontaneous
  Country: TW (occurrence: None)
  Receive Date: 20141014
  Receipt Date: 20141014
  Transmission Date: 20150528
  Serious: Yes (Hospitalization)
  Sender: FDA-Public Use
  Company Number: ABR_01833_2014

PATIENT
  Age: 48 Year
  Sex: Male

DRUGS (1)
  1. AMPHETAMINE (AMPHETAMINE) [Suspect]
     Active Substance: AMPHETAMINE
     Dosage: INHALE AMPHETAMINE IN A LARGE DOSE CONTINUOUSLY FOR SEVERAL HOURS] RESPIRATORY (INHALATION)
     Route: 055

REACTIONS (15)
  - Family stress [None]
  - High risk sexual behaviour [None]
  - Urinary tract injury [None]
  - Urinary tract infection [None]
  - Haematuria [None]
  - Stress at work [None]
  - Orchitis [None]
  - Euphoric mood [None]
  - Drug abuse [None]
  - Foreign body [None]
  - Orchidectomy [None]
  - Nephrolithiasis [None]
  - Urethral fistula [None]
  - Urinary incontinence [None]
  - Depression [None]
